FAERS Safety Report 21289050 (Version 1)
Quarter: 2022Q3

REPORT INFORMATION
  Report Type: Spontaneous
  Country: US (occurrence: None)
  Receive Date: 20220902
  Receipt Date: 20220902
  Transmission Date: 20221026
  Serious: No
  Sender: FDA-Public Use
  Company Number: None

PATIENT
  Sex: Male
  Weight: 99.34 kg

DRUGS (9)
  1. CAPECITABINE [Suspect]
     Active Substance: CAPECITABINE
     Indication: Gallbladder cancer
     Dosage: 2000MG  TWICE DAILY ORAL -14 DAYS ON, 7 D OFF;?
     Route: 050
     Dates: start: 20220804
  2. ATORVASTATIN [Concomitant]
     Active Substance: ATORVASTATIN
  3. ELIQUIS [Concomitant]
     Active Substance: APIXABAN
  4. GABAPENTIN [Concomitant]
     Active Substance: GABAPENTIN
  5. GLIPIZIDE [Concomitant]
     Active Substance: GLIPIZIDE
  6. NORCO [Concomitant]
     Active Substance: ACETAMINOPHEN\HYDROCODONE BITARTRATE
  7. PANTOPRAZOLE [Concomitant]
     Active Substance: PANTOPRAZOLE
  8. SYNJARDY [Concomitant]
     Active Substance: EMPAGLIFLOZIN\METFORMIN HYDROCHLORIDE
  9. TRAMADOL [Concomitant]
     Active Substance: TRAMADOL

REACTIONS (2)
  - Palmar-plantar erythrodysaesthesia syndrome [None]
  - Rash [None]
